FAERS Safety Report 14731339 (Version 1)
Quarter: 2018Q2

REPORT INFORMATION
  Report Type: Report from Study
  Country: BR (occurrence: BR)
  Receive Date: 20180407
  Receipt Date: 20180407
  Transmission Date: 20180711
  Serious: Yes (Other)
  Sender: FDA-Public Use
  Company Number: BR-ROCHE-2099772

PATIENT
  Sex: Female
  Weight: 45 kg

DRUGS (3)
  1. KADCYLA [Concomitant]
     Active Substance: ADO-TRASTUZUMAB EMTANSINE
     Route: 065
     Dates: start: 20150319, end: 20151208
  2. HERCEPTIN [Suspect]
     Active Substance: TRASTUZUMAB
     Indication: HER-2 POSITIVE BREAST CANCER
     Route: 065
  3. KADCYLA [Concomitant]
     Active Substance: ADO-TRASTUZUMAB EMTANSINE
     Indication: HER-2 POSITIVE BREAST CANCER
     Route: 065
     Dates: start: 20141126, end: 20151208

REACTIONS (1)
  - Disease recurrence [Unknown]
